FAERS Safety Report 6293319-3 (Version None)
Quarter: 2009Q3

REPORT INFORMATION
  Report Type: 
  Country: None (occurrence: None)
  Receive Date: 20090731
  Receipt Date: 20090724
  Transmission Date: 20100115
  Serious: Yes (Other)
  Sender: FDA-Public Use
  Company Number: US-ELI_LILLY_AND_COMPANY-US200907005779

PATIENT
  Sex: Female

DRUGS (1)
  1. EVISTA [Suspect]
     Dosage: UNK, UNKNOWN
     Route: 065

REACTIONS (5)
  - ARTHRITIS [None]
  - FALL [None]
  - RIB FRACTURE [None]
  - UPPER LIMB FRACTURE [None]
  - WRIST FRACTURE [None]
